FAERS Safety Report 7345031-7 (Version None)
Quarter: 2011Q1

REPORT INFORMATION
  Report Type: 
  Country: None (occurrence: None)
  Receive Date: 20110310
  Receipt Date: 20110307
  Transmission Date: 20110831
  Serious: Yes (Hospitalization, Disabling, Other)
  Sender: FDA-Public Use
  Company Number: US-PFIZER INC-2010175704

PATIENT
  Sex: Male

DRUGS (14)
  1. CHANTIX [Suspect]
     Dosage: STARTING MONTH PACK, APPROXIMATELY 13 CONTINUING MONTH PACKS
     Dates: start: 20090713, end: 20101001
  2. LIPITOR [Concomitant]
     Indication: HYPERLIPIDAEMIA
     Dosage: UNK
     Dates: start: 20070101
  3. ACETYLSALICYLIC ACID [Concomitant]
     Indication: HYPERTENSION
  4. EPINASTINE [Concomitant]
     Indication: MULTIPLE ALLERGIES
     Dosage: UNK
     Dates: start: 20080101
  5. ETODOLAC [Concomitant]
     Indication: PAIN
     Dosage: UNK
     Dates: start: 20070101
  6. NORCO [Concomitant]
     Indication: PAIN
     Dosage: UNK
     Dates: start: 20060101
  7. BENICAR HCT [Concomitant]
     Indication: HYPERTENSION
     Dosage: UNK
     Dates: start: 20070101
  8. ACETYLSALICYLIC ACID [Concomitant]
     Indication: PAIN
     Dosage: UNK
     Dates: start: 20060101
  9. FEXOFENADINE [Concomitant]
     Indication: MULTIPLE ALLERGIES
     Dosage: UNK
     Dates: start: 20060101
  10. OMEPRAZOLE [Concomitant]
     Indication: GASTROOESOPHAGEAL REFLUX DISEASE
     Dosage: UNK
     Dates: start: 20060101
  11. LISINOPRIL [Concomitant]
     Indication: HYPERTENSION
     Dosage: UNK
     Dates: start: 20060101
  12. NASONEX [Concomitant]
     Indication: MULTIPLE ALLERGIES
     Dosage: UNK
     Dates: start: 20060101
  13. CHANTIX [Suspect]
     Indication: SMOKING CESSATION THERAPY
     Dosage: APPROXIMATELY 22 CONTINUING MONTH PACKS
     Dates: start: 20070705, end: 20090401
  14. FISH OIL [Concomitant]
     Indication: CARDIAC DISORDER
     Dosage: UNK
     Dates: start: 20080101

REACTIONS (9)
  - ROAD TRAFFIC ACCIDENT [None]
  - RIB FRACTURE [None]
  - MULTIPLE INJURIES [None]
  - NIGHTMARE [None]
  - ROTATOR CUFF SYNDROME [None]
  - DEPRESSION [None]
  - JOINT DISLOCATION [None]
  - LOSS OF CONSCIOUSNESS [None]
  - ANXIETY [None]
